FAERS Safety Report 17821255 (Version 2)
Quarter: 2021Q1

REPORT INFORMATION
  Report Type: Spontaneous
  Country: CA (occurrence: CA)
  Receive Date: 20200525
  Receipt Date: 20210201
  Transmission Date: 20210419
  Serious: Yes (Hospitalization)
  Sender: FDA-Public Use
  Company Number: CA-PFIZER INC-2020201419

PATIENT
  Age: 65 Year
  Sex: Male

DRUGS (1)
  1. ATORVASTATIN CALCIUM. [Suspect]
     Active Substance: ATORVASTATIN CALCIUM
     Dosage: UNK
     Route: 065

REACTIONS (5)
  - Sepsis [Recovering/Resolving]
  - Cellulitis [Recovering/Resolving]
  - Lymphoedema [Recovering/Resolving]
  - Wound [Recovering/Resolving]
  - Oedema peripheral [Recovering/Resolving]
